FAERS Safety Report 4661092-8 (Version None)
Quarter: 2005Q2

REPORT INFORMATION
  Report Type: 
  Country: None (occurrence: None)
  Receive Date: 20050511
  Receipt Date: 20050503
  Transmission Date: 20051028
  Serious: Yes (Hospitalization)
  Sender: FDA-Public Use
  Company Number: 2005069257

PATIENT
  Age: 81 Year
  Sex: Male
  Weight: 63 kg

DRUGS (2)
  1. NORVASC [Suspect]
     Indication: ILL-DEFINED DISORDER
  2. PERINDOPRIL (PERINDOPRIL) [Suspect]
     Indication: HYPERTENSION
     Dosage: 4 MG (1 IN 24 HR)
     Dates: start: 20040817, end: 20041224

REACTIONS (5)
  - BLOOD PRESSURE FLUCTUATION [None]
  - CYANOSIS [None]
  - ENTEROCOLITIS [None]
  - NASOPHARYNGITIS [None]
  - PULSE ABSENT [None]
